FAERS Safety Report 5926538-3 (Version None)
Quarter: 2008Q4

REPORT INFORMATION
  Report Type: 
  Country: None (occurrence: None)
  Receive Date: 20081022
  Receipt Date: 20081016
  Transmission Date: 20090506
  Serious: Yes (Other)
  Sender: FDA-Public Use
  Company Number: US-JNJFOC-20071100762

PATIENT
  Sex: Female
  Weight: 81.65 kg

DRUGS (15)
  1. REMICADE [Suspect]
  2. REMICADE [Suspect]
  3. REMICADE [Suspect]
  4. REMICADE [Suspect]
     Indication: CROHN'S DISEASE
  5. PENTASA [Concomitant]
     Indication: DRUG USE FOR UNKNOWN INDICATION
  6. PROTONICS [Concomitant]
     Indication: DRUG USE FOR UNKNOWN INDICATION
  7. NEXIUM [Concomitant]
     Indication: DRUG USE FOR UNKNOWN INDICATION
  8. XANAX [Concomitant]
     Indication: DRUG USE FOR UNKNOWN INDICATION
  9. PREMARIN [Concomitant]
     Indication: DRUG USE FOR UNKNOWN INDICATION
  10. MERCAPTOPURINE [Concomitant]
     Indication: DRUG USE FOR UNKNOWN INDICATION
  11. POTASSIUM CHLORIDE [Concomitant]
  12. NEURONTIN [Concomitant]
  13. MAGNATE [Concomitant]
  14. LOMOTIL [Concomitant]
  15. LIMODERM PATCHES [Concomitant]

REACTIONS (39)
  - ABSCESS [None]
  - ALOPECIA [None]
  - ANTINUCLEAR ANTIBODY POSITIVE [None]
  - ATELECTASIS [None]
  - BLOOD MAGNESIUM DECREASED [None]
  - CARPAL TUNNEL SYNDROME [None]
  - CHEST PAIN [None]
  - CONFUSIONAL STATE [None]
  - CONJUNCTIVITIS INFECTIVE [None]
  - COUGH [None]
  - CROHN'S DISEASE [None]
  - DEHYDRATION [None]
  - DRY MOUTH [None]
  - DRY SKIN [None]
  - DYSARTHRIA [None]
  - DYSPNOEA [None]
  - EAR PAIN [None]
  - FEELING ABNORMAL [None]
  - HERPES SIMPLEX [None]
  - HYPOACUSIS [None]
  - HYPOAESTHESIA [None]
  - HYPOTENSION [None]
  - INCISIONAL HERNIA [None]
  - INFECTION [None]
  - INTESTINAL STENOSIS [None]
  - LYMPHADENOPATHY [None]
  - NECK PAIN [None]
  - NEURITIS [None]
  - OESOPHAGITIS [None]
  - OTITIS EXTERNA FUNGAL [None]
  - PNEUMONIA [None]
  - PROTEINURIA [None]
  - PULMONARY MASS [None]
  - RHINITIS ALLERGIC [None]
  - SEBORRHOEA [None]
  - SKIN CANDIDA [None]
  - SYNOVITIS [None]
  - TENOSYNOVITIS [None]
  - TREMOR [None]
